FAERS Safety Report 17501488 (Version 1)
Quarter: 2020Q1

REPORT INFORMATION
  Report Type: Spontaneous
  Country: US (occurrence: US)
  Receive Date: 20200224
  Receipt Date: 20200224
  Transmission Date: 20200409
  Serious: No
  Sender: FDA-Public Use
  Company Number: None

PATIENT
  Age: 50 Year
  Sex: Male

DRUGS (1)
  1. EPCLUSA [Suspect]
     Active Substance: SOFOSBUVIR\VELPATASVIR
     Dosage: ?          OTHER DOSE:1 TABLET;?
     Route: 048
     Dates: start: 202002

REACTIONS (6)
  - Nasopharyngitis [None]
  - Abdominal pain upper [None]
  - Cough [None]
  - Restless legs syndrome [None]
  - Infection [None]
  - Insomnia [None]

NARRATIVE: CASE EVENT DATE: 20200224
